FAERS Safety Report 14322700 (Version 2)
Quarter: 2018Q1

REPORT INFORMATION
  Report Type: Report from Study
  Country: US (occurrence: US)
  Receive Date: 20171225
  Receipt Date: 20180215
  Transmission Date: 20180509
  Serious: Yes (Death)
  Sender: FDA-Public Use
  Company Number: US-B.I. PHARMACEUTICALS,INC./RIDGEFIELD-2017-BI-067373

PATIENT
  Age: 84 Year
  Sex: Male

DRUGS (1)
  1. GILOTRIF [Suspect]
     Active Substance: AFATINIB
     Indication: NON-SMALL CELL LUNG CANCER METASTATIC
     Route: 048
     Dates: start: 20171110

REACTIONS (4)
  - Stomatitis [Unknown]
  - Erythema [Unknown]
  - Death [Fatal]
  - Dry eye [Unknown]

NARRATIVE: CASE EVENT DATE: 201711
